FAERS Safety Report 6973981-X (Version None)
Quarter: 2010Q3

REPORT INFORMATION
  Report Type: 
  Country: None (occurrence: None)
  Receive Date: 20100909
  Receipt Date: 20100901
  Transmission Date: 20110219
  Serious: Yes (Hospitalization)
  Sender: FDA-Public Use
  Company Number: US-SANOFI-AVENTIS-2010SA040887

PATIENT
  Age: 80 Year
  Sex: Female

DRUGS (7)
  1. LANTUS [Suspect]
     Indication: INSULIN-REQUIRING TYPE 2 DIABETES MELLITUS
     Dosage: 27 TO 30 UNITS
     Route: 058
     Dates: start: 20060101
  2. OPTICLICK [Suspect]
     Indication: INSULIN-REQUIRING TYPE 2 DIABETES MELLITUS
     Dates: start: 20060101
  3. PREDNISONE [Suspect]
     Route: 065
  4. AVELOX [Suspect]
     Route: 065
  5. PROMETHAZINE [Suspect]
     Route: 065
  6. ROBITUSSIN ^WYETH^ [Suspect]
     Route: 065
  7. OXYGEN [Concomitant]

REACTIONS (13)
  - ABDOMINAL WALL DISORDER [None]
  - BLOOD GLUCOSE INCREASED [None]
  - CONTUSION [None]
  - DYSPNOEA [None]
  - FALL [None]
  - GLYCOSYLATED HAEMOGLOBIN INCREASED [None]
  - MALAISE [None]
  - PAIN [None]
  - PELVIC PAIN [None]
  - PNEUMONIA [None]
  - RESPIRATORY RATE INCREASED [None]
  - SKIN INJURY [None]
  - STAPHYLOCOCCAL INFECTION [None]
